FAERS Safety Report 18445676 (Version 1)
Quarter: 2020Q4

REPORT INFORMATION
  Report Type: Spontaneous
  Country: US (occurrence: US)
  Receive Date: 20201030
  Receipt Date: 20201030
  Transmission Date: 20210114
  Serious: Yes (Life-Threatening, Disabling, Other)
  Sender: FDA-Public Use
  Company Number: US-TARO-2020TAR01610

PATIENT
  Sex: Male

DRUGS (1)
  1. AMIODARONE HCL TABLET [Suspect]
     Active Substance: AMIODARONE HYDROCHLORIDE
     Indication: ATRIAL FIBRILLATION
     Dosage: UNK
     Route: 065
     Dates: start: 201408

REACTIONS (3)
  - Pulmonary oedema [Unknown]
  - Off label use [Unknown]
  - Chronic obstructive pulmonary disease [Unknown]
